FAERS Safety Report 5339052-3 (Version None)
Quarter: 2007Q2

REPORT INFORMATION
  Report Type: 
  Country: None (occurrence: None)
  Receive Date: 20070525
  Receipt Date: 20070514
  Transmission Date: 20071010
  Serious: Yes (Other)
  Sender: FDA-Public Use
  Company Number: US020123

PATIENT
  Age: 39 Year
  Sex: Female

DRUGS (6)
  1. MODIODAL [Suspect]
     Indication: DEPRESSION
     Dosage: 200 MG QD ORAL
     Route: 048
     Dates: start: 20070421, end: 20070427
  2. ABILIFY [Suspect]
     Indication: DEPRESSION
     Dosage: 6 MG QD
     Dates: start: 20070401
  3. PAXIL [Concomitant]
  4. LIMAS [Concomitant]
  5. NORITREN [Concomitant]
  6. RIVOTRIL [Concomitant]

REACTIONS (5)
  - ANXIETY [None]
  - DEPRESSION [None]
  - DISEASE RECURRENCE [None]
  - DRUG INTERACTION [None]
  - OBESITY [None]
